FAERS Safety Report 13393875 (Version 2)
Quarter: 2017Q3

REPORT INFORMATION
  Report Type: Spontaneous
  Country: US (occurrence: US)
  Receive Date: 20170331
  Receipt Date: 20170816
  Transmission Date: 20171127
  Serious: Yes (Other)
  Sender: FDA-Public Use
  Company Number: US-BRISTOL-MYERS SQUIBB COMPANY-BMS-2017-023477

PATIENT
  Age: 91 Year
  Sex: Female
  Weight: 58.5 kg

DRUGS (1)
  1. ELIQUIS [Suspect]
     Active Substance: APIXABAN
     Indication: PRODUCT USED FOR UNKNOWN INDICATION
     Dosage: 2.5 MG, BID
     Route: 048

REACTIONS (10)
  - Headache [Unknown]
  - Skin disorder [Unknown]
  - Nightmare [Unknown]
  - Rash [Unknown]
  - Pruritus generalised [Recovering/Resolving]
  - Insomnia [Unknown]
  - Urinary incontinence [Unknown]
  - Hypotension [Unknown]
  - Peripheral swelling [Unknown]
  - Cardiac pacemaker insertion [Unknown]

NARRATIVE: CASE EVENT DATE: 20161101
